FAERS Safety Report 17739819 (Version 1)
Quarter: 2020Q2

REPORT INFORMATION
  Report Type: Spontaneous
  Country: US (occurrence: US)
  Receive Date: 20200502
  Receipt Date: 20200502
  Transmission Date: 20200714
  Serious: Yes (Other)
  Sender: FDA-Public Use
  Company Number: None

PATIENT
  Age: 83 Year
  Sex: Male
  Weight: 75.6 kg

DRUGS (5)
  1. POTASSIUM [Concomitant]
     Active Substance: POTASSIUM
  2. CARDIZEM CD [Suspect]
     Active Substance: DILTIAZEM HYDROCHLORIDE
     Indication: HEART RATE INCREASED
     Dosage: ?          QUANTITY:1 CAPSULE(S);?
     Route: 048
  3. THYROXIN [Concomitant]
     Active Substance: LEVOTHYROXINE
  4. NATOKANASE MAGNESIUM CITRATE [Concomitant]
  5. CARDIZEM CD [Suspect]
     Active Substance: DILTIAZEM HYDROCHLORIDE
     Indication: HYPERTENSION
     Dosage: ?          QUANTITY:1 CAPSULE(S);?
     Route: 048

REACTIONS (6)
  - Lethargy [None]
  - Myalgia [None]
  - Headache [None]
  - Arthralgia [None]
  - Drug ineffective [None]
  - Pruritus [None]

NARRATIVE: CASE EVENT DATE: 20190215
